FAERS Safety Report 5633392-6 (Version None)
Quarter: 2008Q1

REPORT INFORMATION
  Report Type: 
  Country: None (occurrence: None)
  Receive Date: 20080221
  Receipt Date: 20070302
  Transmission Date: 20080703
  Serious: No
  Sender: FDA-Public Use
  Company Number: A0641618A

PATIENT
  Sex: Female

DRUGS (3)
  1. ZIAGEN [Suspect]
     Indication: HIV INFECTION
     Route: 048
  2. TENOFOVIR DISOPROXIL FUMARATE [Concomitant]
  3. RITONAVIR [Concomitant]

REACTIONS (2)
  - PHARYNGEAL OEDEMA [None]
  - URTICARIA [None]
